FAERS Safety Report 5741894-7 (Version None)
Quarter: 2008Q2

REPORT INFORMATION
  Report Type: 
  Country: None (occurrence: None)
  Receive Date: 20080514
  Receipt Date: 20080514
  Transmission Date: 20081010
  Serious: No
  Sender: FDA-Public Use
  Company Number: None

PATIENT
  Age: 51 Year
  Sex: Female
  Weight: 131.9967 kg

DRUGS (2)
  1. CYMBALTA [Suspect]
     Indication: ANXIETY
     Dosage: 20 MG  1 PER DAY PO
     Route: 048
     Dates: start: 20071218, end: 20071222
  2. CYMBALTA [Suspect]
     Indication: DEPRESSION
     Dosage: 20 MG  1 PER DAY PO
     Route: 048
     Dates: start: 20071218, end: 20071222

REACTIONS (3)
  - HYPERSENSITIVITY [None]
  - HYPOAESTHESIA ORAL [None]
  - PAIN [None]
